FAERS Safety Report 4919450-X (Version None)
Quarter: 2006Q1

REPORT INFORMATION
  Report Type: 
  Country: None (occurrence: None)
  Receive Date: 20060222
  Receipt Date: 20051017
  Transmission Date: 20060701
  Serious: Yes (Hospitalization)
  Sender: FDA-Public Use
  Company Number: US-MERCK-0510USA07680

PATIENT
  Age: 58 Year
  Sex: Female
  Weight: 182 kg

DRUGS (15)
  1. VIOXX [Suspect]
     Indication: OSTEOARTHRITIS
     Route: 048
     Dates: start: 20000301, end: 20040901
  2. DIOVAN [Concomitant]
     Indication: HYPERTENSION
     Route: 065
     Dates: start: 20000301
  3. ULTRAM [Concomitant]
     Indication: ARTHRITIS
     Route: 065
     Dates: start: 20000301, end: 20020701
  4. ACTOS [Concomitant]
     Route: 065
  5. HYTRIN [Concomitant]
     Indication: HYPERTENSION
     Route: 065
     Dates: start: 20000401
  6. GLYBURIDE [Concomitant]
     Indication: DIABETES MELLITUS
     Route: 065
     Dates: start: 20000401
  7. GLYBURIDE [Concomitant]
     Indication: HYPERTENSION
     Route: 065
     Dates: start: 20000401
  8. LASIX [Concomitant]
     Indication: HYPERTENSION
     Route: 065
     Dates: start: 20000401
  9. LASIX [Concomitant]
     Route: 065
  10. MAGNESIUM (UNSPECIFIED) [Concomitant]
     Route: 065
  11. TRAZODONE HYDROCHLORIDE [Concomitant]
     Route: 065
  12. ZESTRIL [Concomitant]
     Route: 065
  13. TYLENOL [Concomitant]
     Route: 065
  14. ASPIRIN [Concomitant]
     Route: 065
  15. DILTIAZEM HYDROCHLORIDE [Concomitant]
     Route: 065

REACTIONS (10)
  - ANXIETY [None]
  - BLOOD CHOLESTEROL INCREASED [None]
  - CARDIOMEGALY [None]
  - DYSPNOEA [None]
  - ERYTHEMA [None]
  - FLUID OVERLOAD [None]
  - MYOCARDIAL INFARCTION [None]
  - OEDEMA PERIPHERAL [None]
  - RENAL FAILURE [None]
  - STRESS [None]
